FAERS Safety Report 21812165 (Version 1)
Quarter: 2023Q1

REPORT INFORMATION
  Report Type: Spontaneous
  Country: US (occurrence: None)
  Receive Date: 20230102
  Receipt Date: 20230102
  Transmission Date: 20230417
  Serious: No
  Sender: FDA-Public Use
  Company Number: None

PATIENT
  Age: 33 Year
  Sex: Male

DRUGS (1)
  1. TEMOZOLOMIDE [Suspect]
     Active Substance: TEMOZOLOMIDE
     Indication: Brain neoplasm malignant
     Dosage: OTHER FREQUENCY : OTHER;?
     Route: 048
     Dates: start: 202204

REACTIONS (6)
  - Urticaria [None]
  - Erythema [None]
  - Swelling [None]
  - Pruritus [None]
  - Product quality issue [None]
  - Manufacturing issue [None]

NARRATIVE: CASE EVENT DATE: 20230101
